FAERS Safety Report 5258256-1 (Version None)
Quarter: 2007Q1

REPORT INFORMATION
  Report Type: 
  Country: None (occurrence: None)
  Receive Date: 20070302
  Receipt Date: 20070226
  Transmission Date: 20070707
  Serious: No
  Sender: FDA-Public Use
  Company Number: AECAN200700042

PATIENT
  Age: 54 Year
  Sex: Male

DRUGS (8)
  1. GAMUNEX [Suspect]
     Indication: HYPOGAMMAGLOBULINAEMIA
     Dosage: 15 GM; IV
     Route: 042
     Dates: start: 20060301
  2. FLUDARABINE (CON.) [Concomitant]
  3. CYCLOPHOSPHAMIDE (CON.) [Concomitant]
  4. RITUXAN (CON.) [Concomitant]
  5. SEPTRA (CON.) [Concomitant]
  6. CEFOTAXIME (CON.) [Concomitant]
  7. ANTIVIRALS NOS (CON.) [Concomitant]
  8. OXYGEN (CON.) [Concomitant]

REACTIONS (2)
  - CHILLS [None]
  - OXYGEN CONSUMPTION INCREASED [None]
